FAERS Safety Report 6426521-8 (Version None)
Quarter: 2009Q4

REPORT INFORMATION
  Report Type: 
  Country: None (occurrence: None)
  Receive Date: 20091030
  Receipt Date: 20091019
  Transmission Date: 20100525
  Serious: Yes (Hospitalization)
  Sender: FDA-Public Use
  Company Number: 2009-00511

PATIENT
  Age: 75 Year
  Sex: Male
  Weight: 89.1 kg

DRUGS (6)
  1. VELCADE [Suspect]
     Indication: MULTIPLE MYELOMA
     Dosage: INTRAVENOUS
     Route: 042
     Dates: start: 20081009, end: 20081216
  2. CNT0328(CNT0328) VIAL [Suspect]
     Indication: MULTIPLE MYELOMA
     Dates: start: 20081023, end: 20081216
  3. ATENOLOL [Concomitant]
  4. ASPIRIN [Concomitant]
  5. CLARITHROMYCIN [Concomitant]
  6. THIAMINE (THIAMINE) [Concomitant]

REACTIONS (4)
  - CARDIAC FAILURE [None]
  - DERMATITIS EXFOLIATIVE [None]
  - ECZEMA [None]
  - PERIORBITAL OEDEMA [None]
